FAERS Safety Report 8538632-1 (Version None)
Quarter: 2012Q3

REPORT INFORMATION
  Report Type: 
  Country: None (occurrence: None)
  Receive Date: 20120718
  Receipt Date: 20120718
  Transmission Date: 20120928
  Serious: No
  Sender: FDA-Public Use
  Company Number: None

PATIENT
  Sex: Female
  Weight: 86.1834 kg

DRUGS (2)
  1. SIMVASTATIN [Suspect]
     Indication: BLOOD CHOLESTEROL
     Dosage: 1 PER DAY DAILY
     Dates: start: 20110101
  2. VERAPAMIL [Suspect]
     Indication: HYPERTENSION
     Dosage: 1 PER DAY DAILY
     Dates: start: 20030101, end: 20120101

REACTIONS (5)
  - SWELLING [None]
  - JOINT STIFFNESS [None]
  - HEADACHE [None]
  - DRUG INTERACTION [None]
  - ARTHRALGIA [None]
